FAERS Safety Report 4528653-8 (Version None)
Quarter: 2004Q4

REPORT INFORMATION
  Report Type: 
  Country: None (occurrence: None)
  Receive Date: 20041216
  Receipt Date: 20041209
  Transmission Date: 20050328
  Serious: Yes (Hospitalization)
  Sender: FDA-Public Use
  Company Number: BE-JNJFOC-20041203235

PATIENT
  Age: 49 Year
  Sex: Female

DRUGS (1)
  1. PREPULSID [Suspect]
     Indication: DIABETIC GASTROPARESIS
     Route: 049
     Dates: start: 20030128, end: 20041010

REACTIONS (1)
  - HOSPITALISATION [None]
